FAERS Safety Report 11814515 (Version 1)
Quarter: 2015Q4

REPORT INFORMATION
  Report Type: Spontaneous
  Country: US (occurrence: US)
  Receive Date: 20151209
  Receipt Date: 20151209
  Transmission Date: 20160305
  Serious: Yes (Life-Threatening)
  Sender: FDA-Public Use
  Company Number: US-ALK ABELLO INC-1045252

PATIENT
  Age: 65 Year
  Sex: Male

DRUGS (8)
  1. NIACIN. [Concomitant]
     Active Substance: NIACIN
  2. XOLAIR [Suspect]
     Active Substance: OMALIZUMAB
     Route: 058
  3. MOBIC [Concomitant]
     Active Substance: MELOXICAM
  4. VARIOUS UNSPECIFIED ALK ALLERGEN EXTRACTS [Suspect]
     Active Substance: ALLERGENIC EXTRACTS
  5. LIPITOR [Concomitant]
     Active Substance: ATORVASTATIN CALCIUM
  6. SYNTHROID [Concomitant]
     Active Substance: LEVOTHYROXINE SODIUM
  7. PROVIGIL [Concomitant]
     Active Substance: MODAFINIL
  8. CELEXA [Concomitant]
     Active Substance: CITALOPRAM HYDROBROMIDE

REACTIONS (3)
  - Urticaria [Recovered/Resolved]
  - Dyspnoea [Recovered/Resolved]
  - Anaphylactic reaction [None]
